FAERS Safety Report 11011293 (Version 2)
Quarter: 2015Q2

REPORT INFORMATION
  Report Type: Spontaneous
  Country: US (occurrence: US)
  Receive Date: 20150410
  Receipt Date: 20150612
  Transmission Date: 20150821
  Serious: Yes (Death, Hospitalization, Other)
  Sender: FDA-Public Use
  Company Number: US-ASTRAZENECA-2015SE32252

PATIENT
  Age: 53 Year
  Sex: Male

DRUGS (1)
  1. BRILINTA [Suspect]
     Active Substance: TICAGRELOR
     Indication: ACUTE CORONARY SYNDROME
     Route: 050
     Dates: start: 20150328, end: 20150330

REACTIONS (7)
  - Haemothorax [Fatal]
  - Cardiac arrest [Unknown]
  - Haemorrhage [Unknown]
  - Rib fracture [Unknown]
  - Pneumothorax [Fatal]
  - Brain death [Fatal]
  - Fall [Fatal]

NARRATIVE: CASE EVENT DATE: 201503
